FAERS Safety Report 25571382 (Version 1)
Quarter: 2025Q3

REPORT INFORMATION
  Report Type: Spontaneous
  Country: EU (occurrence: None)
  Receive Date: 20250717
  Receipt Date: 20250717
  Transmission Date: 20251021
  Serious: Yes (Hospitalization)
  Sender: ORION
  Company Number: None

PATIENT
  Age: 76 Year
  Sex: Male

DRUGS (5)
  1. METHOTREXATE [Interacting]
     Active Substance: METHOTREXATE
     Indication: Psoriatic arthropathy
     Dates: start: 20250602, end: 20250611
  2. METHOTREXATE [Interacting]
     Active Substance: METHOTREXATE
     Indication: Psoriatic arthropathy
  3. ISONIAZID\PYRIDOXINE HYDROCHLORIDE [Interacting]
     Active Substance: ISONIAZID\PYRIDOXINE HYDROCHLORIDE
     Indication: Latent tuberculosis
     Dosage: STRENGTH: 300 MG/50 MG
     Dates: start: 20250602, end: 20250611
  4. RIFAMPIN [Interacting]
     Active Substance: RIFAMPIN
     Indication: Latent tuberculosis
     Dosage: STRENGTH: 300 MG
     Dates: start: 20250602, end: 20250611
  5. METHOTREXATE [Concomitant]
     Active Substance: METHOTREXATE
     Indication: Psoriatic arthropathy
     Dates: start: 20250408, end: 20250610

REACTIONS (6)
  - Accidental overdose [Recovered/Resolved]
  - Drug eruption [Recovering/Resolving]
  - Thrombocytopenia [Recovered/Resolved]
  - Leukopenia [Recovered/Resolved]
  - Inappropriate schedule of product administration [Unknown]
  - Drug interaction [Unknown]

NARRATIVE: CASE EVENT DATE: 20250602
